FAERS Safety Report 15965725 (Version 1)
Quarter: 2019Q1

REPORT INFORMATION
  Report Type: Spontaneous
  Country: IT (occurrence: IT)
  Receive Date: 20190215
  Receipt Date: 20190215
  Transmission Date: 20190418
  Serious: Yes (Other)
  Sender: FDA-Public Use
  Company Number: IT-AUROBINDO-AUR-APL-2019-008265

PATIENT

DRUGS (1)
  1. CEFIXIME. [Suspect]
     Active Substance: CEFIXIME
     Indication: PHARYNGOTONSILLITIS
     Dosage: UNK, FINE GRANULE
     Route: 048
     Dates: start: 20180205

REACTIONS (3)
  - Lip oedema [Recovering/Resolving]
  - Wheezing [Recovering/Resolving]
  - Dyspnoea [Recovering/Resolving]

NARRATIVE: CASE EVENT DATE: 20180205
